FAERS Safety Report 16375493 (Version 1)
Quarter: 2019Q2

REPORT INFORMATION
  Report Type: Spontaneous
  Country: CN (occurrence: CN)
  Receive Date: 20190531
  Receipt Date: 20190531
  Transmission Date: 20190711
  Serious: Yes (Other)
  Sender: FDA-Public Use
  Company Number: CN-ROCHE-2326488

PATIENT
  Age: 47 Year
  Sex: Female

DRUGS (11)
  1. PERJETA [Suspect]
     Active Substance: PERTUZUMAB
     Indication: CANCER SURGERY
     Route: 065
     Dates: start: 20181013
  2. PACLITAXEL. [Concomitant]
     Active Substance: PACLITAXEL
     Route: 065
     Dates: start: 20181123
  3. CYCLOPHOSPHAMIDE. [Concomitant]
     Active Substance: CYCLOPHOSPHAMIDE
     Indication: CANCER SURGERY
     Route: 065
     Dates: start: 20180810
  4. PERJETA [Suspect]
     Active Substance: PERTUZUMAB
     Route: 065
     Dates: start: 20181106
  5. HERCEPTIN [Suspect]
     Active Substance: TRASTUZUMAB
     Route: 065
     Dates: start: 20181123
  6. HERCEPTIN [Suspect]
     Active Substance: TRASTUZUMAB
     Route: 065
     Dates: start: 20181106
  7. PERJETA [Suspect]
     Active Substance: PERTUZUMAB
     Route: 065
     Dates: start: 20181123
  8. HERCEPTIN [Suspect]
     Active Substance: TRASTUZUMAB
     Indication: CANCER SURGERY
     Route: 065
     Dates: start: 20181013
  9. PACLITAXEL. [Concomitant]
     Active Substance: PACLITAXEL
     Indication: CANCER SURGERY
     Route: 065
     Dates: start: 20181013
  10. EPIRUBICIN [Concomitant]
     Active Substance: EPIRUBICIN
     Indication: CANCER SURGERY
     Route: 065
     Dates: start: 20180810
  11. PACLITAXEL. [Concomitant]
     Active Substance: PACLITAXEL
     Route: 065
     Dates: start: 20181106

REACTIONS (1)
  - Pneumonitis [Unknown]
